FAERS Safety Report 8191697-1 (Version None)
Quarter: 2012Q1

REPORT INFORMATION
  Report Type: 
  Country: None (occurrence: None)
  Receive Date: 20120307
  Receipt Date: 20110419
  Transmission Date: 20120608
  Serious: No
  Sender: FDA-Public Use
  Company Number: US-ASTRAZENECA-2011SE22804

PATIENT
  Age: 28 Year
  Sex: Female
  Weight: 72.6 kg

DRUGS (1)
  1. ZOMIG [Suspect]
     Indication: MIGRAINE
     Route: 045

REACTIONS (5)
  - PHOTOPHOBIA [None]
  - HALLUCINATION [None]
  - HYPERACUSIS [None]
  - INSOMNIA [None]
  - LETHARGY [None]
